FAERS Safety Report 10070668 (Version 1)
Quarter: 2014Q2

REPORT INFORMATION
  Report Type: Spontaneous
  Country: US (occurrence: None)
  Receive Date: 20140408
  Receipt Date: 20140408
  Transmission Date: 20141212
  Serious: Yes (Hospitalization)
  Sender: FDA-Public Use
  Company Number: UCM201403-000028

PATIENT
  Age: 52 Year
  Sex: Female

DRUGS (3)
  1. HYDROCHLOROTHIAZIDE (HYDROCHLOROTHIAZIDE) (HYDROCHLOROTHIAZIDE) [Suspect]
     Indication: HYPERTENSION
  2. METOPROLOL (METOPROLOL) (METOPROLOL) [Suspect]
     Indication: HYPERTENSION
  3. LISINOPRIL (LISINOPRIL) (LISINOPRIL) [Suspect]
     Indication: HYPERTENSION

REACTIONS (2)
  - Dehydration [None]
  - Presyncope [None]
